FAERS Safety Report 8720901 (Version 3)
Quarter: 2012Q4

REPORT INFORMATION
  Report Type: 
  Country: JP (occurrence: JP)
  Receive Date: 20120813
  Receipt Date: 20120918
  Transmission Date: 20130627
  Serious: Yes (Disabling)
  Sender: FDA-Public Use
  Company Number: JP-GLAXOSMITHKLINE-B0821874A

PATIENT
  Age: 61 Year
  Sex: Male

DRUGS (11)
  1. VALTREX [Suspect]
     Indication: HERPES ZOSTER
     Dosage: 250MG Per day
     Route: 048
     Dates: start: 20120803, end: 20120804
  2. ZOVIRAX [Concomitant]
     Indication: HERPES ZOSTER
     Route: 061
     Dates: start: 20120723, end: 20120803
  3. ZOVIRAX [Concomitant]
     Indication: HERPES ZOSTER
     Route: 061
     Dates: start: 20120806
  4. FAMOSTAGINE [Concomitant]
     Route: 065
  5. BAYASPIRIN [Concomitant]
     Route: 048
  6. PROMAC [Concomitant]
     Route: 048
  7. FUROSEMIDE [Concomitant]
     Route: 065
  8. MENESIT [Concomitant]
     Route: 048
  9. SIGMART [Concomitant]
     Route: 065
  10. RIVOTRIL [Concomitant]
     Route: 048
  11. NESINA [Concomitant]
     Route: 048

REACTIONS (3)
  - Hallucination [Recovering/Resolving]
  - Affect lability [Recovering/Resolving]
  - Psychiatric symptom [Recovering/Resolving]
